FAERS Safety Report 11862883 (Version 1)
Quarter: 2015Q4

REPORT INFORMATION
  Report Type: Other
  Country: GR (occurrence: GR)
  Receive Date: 20151223
  Receipt Date: 20151223
  Transmission Date: 20160305
  Serious: No
  Sender: FDA-Public Use
  Company Number: GR-LUPIN PHARMACEUTICALS INC.-2015-03690

PATIENT
  Age: 75 Year
  Sex: Male

DRUGS (1)
  1. CIPROFLOXACIN. [Suspect]
     Active Substance: CIPROFLOXACIN
     Indication: PROSTATITIS
     Route: 048

REACTIONS (1)
  - Drug eruption [Recovered/Resolved]
